FAERS Safety Report 26185337 (Version 1)
Quarter: 2025Q4

REPORT INFORMATION
  Report Type: Report from Study
  Country: US (occurrence: US)
  Receive Date: 20251222
  Receipt Date: 20251222
  Transmission Date: 20260118
  Serious: No
  Sender: SANDOZ
  Company Number: US-SANDOZ-SDZ2025US095796

PATIENT
  Sex: Male

DRUGS (1)
  1. OMNITROPE [Suspect]
     Active Substance: SOMATROPIN
     Indication: Product used for unknown indication
     Dosage: OMNITROPE 10 MG/1.5 ML SOLUTION FOR INJECTION IN CARTRIDGE

REACTIONS (3)
  - Injection site pain [Unknown]
  - Incorrect dose administered by device [Unknown]
  - Device leakage [Unknown]
